FAERS Safety Report 23179209 (Version 1)
Quarter: 2023Q4

REPORT INFORMATION
  Report Type: Spontaneous
  Country: US (occurrence: US)
  Receive Date: 20231113
  Receipt Date: 20231113
  Transmission Date: 20240109
  Serious: No
  Sender: FDA-Public Use
  Company Number: US-PFIZER INC-202300352866

PATIENT
  Age: 69 Year
  Sex: Male

DRUGS (3)
  1. PAXLOVID [Suspect]
     Active Substance: NIRMATRELVIR\RITONAVIR
     Indication: COVID-19 treatment
     Dosage: UNK
     Dates: start: 20231020, end: 20231024
  2. PRAVASTATIN [Concomitant]
     Active Substance: PRAVASTATIN
     Dosage: UNK
     Dates: end: 20231020
  3. RAMIPRIL [Concomitant]
     Active Substance: RAMIPRIL
     Dosage: UNK

REACTIONS (3)
  - Sneezing [Recovering/Resolving]
  - Nasopharyngitis [Recovering/Resolving]
  - Rhinorrhoea [Recovering/Resolving]

NARRATIVE: CASE EVENT DATE: 20231029
